FAERS Safety Report 10227649 (Version 2)
Quarter: 2014Q2

REPORT INFORMATION
  Report Type: Report from Study
  Country: CA (occurrence: None)
  Receive Date: 20140606
  Receipt Date: 20140616
  Transmission Date: 20141212
  Serious: Yes (Hospitalization)
  Sender: FDA-Public Use
  Company Number: CA-015932

PATIENT
  Age: 88 Year
  Sex: Male

DRUGS (8)
  1. FIRMAGON (FIRMAGON) 80 MG (NOT SPECIFIED) [Suspect]
     Indication: PROSTATE CANCER
     Dosage: 80MG 1X/MONTH SUBCUTANEOUS
     Route: 058
     Dates: start: 20140321
  2. DIAMICRON [Concomitant]
  3. RATIO-METFORMIN [Concomitant]
  4. ENTROPHEN [Concomitant]
  5. PAMIDRONATE [Concomitant]
  6. TIAZAC [Concomitant]
  7. IRBESARTAN SANDOZ [Concomitant]
  8. VIT B12 [Concomitant]

REACTIONS (6)
  - Clostridium difficile infection [None]
  - Diabetic coma [None]
  - Asthenia [None]
  - Skin disorder [None]
  - Activities of daily living impaired [None]
  - Mobility decreased [None]
